FAERS Safety Report 10231008 (Version 1)
Quarter: 2014Q2

REPORT INFORMATION
  Report Type: Spontaneous
  Country: ES (occurrence: ES)
  Receive Date: 20140611
  Receipt Date: 20140611
  Transmission Date: 20141212
  Serious: Yes (Hospitalization)
  Sender: FDA-Public Use
  Company Number: ES-JNJFOC-20140604266

PATIENT
  Age: 83 Year
  Sex: Female

DRUGS (5)
  1. ZALDIAR [Suspect]
     Indication: BACK PAIN
     Route: 048
     Dates: start: 20140408, end: 20140415
  2. LYRICA [Interacting]
     Indication: BACK PAIN
     Route: 048
     Dates: start: 20140408, end: 20140415
  3. TOVIAZ [Interacting]
     Indication: URINARY INCONTINENCE
     Route: 048
     Dates: start: 20090605, end: 20140415
  4. ENALAPRIL [Concomitant]
     Indication: HYPERTENSION
     Route: 048
     Dates: start: 20111004
  5. LEXATIN [Concomitant]
     Indication: ANXIETY
     Route: 048
     Dates: start: 20120517, end: 20140415

REACTIONS (10)
  - Serotonin syndrome [Recovering/Resolving]
  - Dysstasia [Recovering/Resolving]
  - Musculoskeletal stiffness [Recovering/Resolving]
  - Dizziness [Recovering/Resolving]
  - Somnolence [Recovering/Resolving]
  - Drug interaction [Recovering/Resolving]
  - Confusional state [Recovering/Resolving]
  - Muscular weakness [Recovering/Resolving]
  - Disorientation [Recovering/Resolving]
  - Gait disturbance [Recovering/Resolving]
